FAERS Safety Report 4594894-7 (Version None)
Quarter: 2005Q1

REPORT INFORMATION
  Report Type: 
  Country: None (occurrence: None)
  Receive Date: 20050223
  Receipt Date: 20050209
  Transmission Date: 20050727
  Serious: Yes (Hospitalization)
  Sender: FDA-Public Use
  Company Number: SUS1-2005-00095

PATIENT
  Sex: Female

DRUGS (1)
  1. ADDERALL XR 5 [Suspect]

REACTIONS (1)
  - HALLUCINATION [None]
